FAERS Safety Report 16354141 (Version 3)
Quarter: 2020Q2

REPORT INFORMATION
  Report Type: Report from Study
  Country: US (occurrence: US)
  Receive Date: 20190524
  Receipt Date: 20200608
  Transmission Date: 20200713
  Serious: Yes (Hospitalization)
  Sender: FDA-Public Use
  Company Number: US-ASTELLAS-2019US021940

PATIENT
  Sex: Male

DRUGS (1)
  1. ENZALUTAMIDE [Suspect]
     Active Substance: ENZALUTAMIDE
     Indication: HORMONE-REFRACTORY PROSTATE CANCER
     Route: 048
     Dates: start: 20190118

REACTIONS (6)
  - Insomnia [Unknown]
  - Fatigue [Unknown]
  - Fall [Unknown]
  - Product availability issue [Unknown]
  - Blood glucose abnormal [Unknown]
  - Chronic obstructive pulmonary disease [Unknown]
